FAERS Safety Report 6743468-8 (Version None)
Quarter: 2010Q2

REPORT INFORMATION
  Report Type: 
  Country: None (occurrence: None)
  Receive Date: 20100527
  Receipt Date: 20100524
  Transmission Date: 20101027
  Serious: Yes (Hospitalization, Other)
  Sender: FDA-Public Use
  Company Number: CN-ROXANE LABORATORIES, INC.-2010-RO-00619RO

PATIENT
  Age: 40 Year
  Sex: Female

DRUGS (4)
  1. AMLODIPINE [Suspect]
     Indication: HYPERTENSION
     Dosage: 5 MG
     Route: 048
  2. MAGNESIUM SULFATE [Suspect]
     Indication: PRE-ECLAMPSIA
     Dosage: 2 G
     Route: 042
  3. MAGNESIUM SULFATE [Suspect]
     Dosage: 10 G
     Route: 042
  4. LABETALOL HCL [Suspect]
     Indication: HYPERTENSION
     Dosage: 200 MG

REACTIONS (8)
  - BLOOD CALCIUM DECREASED [None]
  - BLOOD MAGNESIUM INCREASED [None]
  - CAESAREAN SECTION [None]
  - DRUG EXPOSURE DURING PREGNANCY [None]
  - NEUROMUSCULAR BLOCKADE [None]
  - PRE-ECLAMPSIA [None]
  - PREMATURE LABOUR [None]
  - SELF-MEDICATION [None]
